FAERS Safety Report 24050361 (Version 2)
Quarter: 2024Q3

REPORT INFORMATION
  Report Type: Spontaneous
  Country: FR (occurrence: FR)
  Receive Date: 20240704
  Receipt Date: 20240720
  Transmission Date: 20241017
  Serious: Yes (Life-Threatening, Hospitalization)
  Sender: TEVA
  Company Number: FR-TEVA-VS-3215330

PATIENT
  Age: 11 Month
  Sex: Male

DRUGS (3)
  1. METOPIMAZINE [Suspect]
     Active Substance: METOPIMAZINE
     Indication: Vomiting
     Route: 054
     Dates: start: 2021
  2. PHENYTOIN [Concomitant]
     Active Substance: PHENYTOIN
     Indication: Seizure
     Route: 065
     Dates: start: 2021
  3. DIAZEPAM [Suspect]
     Active Substance: DIAZEPAM
     Indication: Seizure
     Route: 054
     Dates: start: 2021

REACTIONS (1)
  - Drug ineffective [Unknown]

NARRATIVE: CASE EVENT DATE: 20210101
